FAERS Safety Report 9619595 (Version 1)
Quarter: 2013Q4

REPORT INFORMATION
  Report Type: Report from Study
  Country: US (occurrence: US)
  Receive Date: 20131014
  Receipt Date: 20131014
  Transmission Date: 20140711
  Serious: Yes (Hospitalization, Other)
  Sender: FDA-Public Use
  Company Number: US-ABBVIE-13P-163-1154880-00

PATIENT
  Age: 37 Year
  Sex: Female
  Weight: 82.17 kg

DRUGS (5)
  1. HUMIRA [Suspect]
     Indication: CROHN^S DISEASE
     Route: 058
     Dates: start: 20120512, end: 20130718
  2. HUMIRA [Suspect]
     Route: 058
  3. 6MP [Concomitant]
     Indication: PRODUCT USED FOR UNKNOWN INDICATION
  4. NORGEST [Concomitant]
     Indication: PRODUCT USED FOR UNKNOWN INDICATION
  5. ENTOCORT [Concomitant]
     Indication: PRODUCT USED FOR UNKNOWN INDICATION

REACTIONS (1)
  - Hepatobiliary scan abnormal [Recovered/Resolved]
